FAERS Safety Report 10650952 (Version 1)
Quarter: 2014Q4

REPORT INFORMATION
  Report Type: Spontaneous
  Country: US (occurrence: US)
  Receive Date: 20141215
  Receipt Date: 20141215
  Transmission Date: 20150529
  Serious: Yes (Death, Other)
  Sender: FDA-Public Use
  Company Number: US-IROKO PRODUCTS LTD-US-I09001-14-00242

PATIENT
  Sex: Female

DRUGS (4)
  1. INDOCIN [Suspect]
     Active Substance: INDOMETHACIN\INDOMETHACIN SODIUM
     Indication: PROCEDURAL PAIN
     Route: 065
  2. MICARDIS [Suspect]
     Active Substance: TELMISARTAN
     Indication: PRODUCT USED FOR UNKNOWN INDICATION
     Route: 065
  3. HYDROCHLOROTHIAZIDE. [Suspect]
     Active Substance: HYDROCHLOROTHIAZIDE
     Indication: PRODUCT USED FOR UNKNOWN INDICATION
     Route: 065
  4. LANOXIN [Suspect]
     Active Substance: DIGOXIN
     Indication: PRODUCT USED FOR UNKNOWN INDICATION
     Route: 065

REACTIONS (9)
  - Psychotic disorder [Fatal]
  - Pulmonary oedema [Fatal]
  - Spleen disorder [Fatal]
  - Jaundice [Fatal]
  - Drug interaction [Fatal]
  - Pyrexia [Fatal]
  - Acute kidney injury [Fatal]
  - Autoimmune haemolytic anaemia [Fatal]
  - Bone marrow failure [Fatal]
